FAERS Safety Report 8078100-7 (Version None)
Quarter: 2012Q1

REPORT INFORMATION
  Report Type: 
  Country: None (occurrence: None)
  Receive Date: 20120127
  Receipt Date: 20110325
  Transmission Date: 20120608
  Serious: No
  Sender: FDA-Public Use
  Company Number: US-ABBOTT-10P-163-0688980-00

PATIENT
  Sex: Female
  Weight: 68.1 kg

DRUGS (8)
  1. HUMIRA [Suspect]
     Indication: RHEUMATOID ARTHRITIS
     Dates: start: 20101116, end: 20101116
  2. VITAMIN D [Concomitant]
     Indication: PRODUCT USED FOR UNKNOWN INDICATION
  3. LEVOTHYROXINE SODIUM [Concomitant]
     Indication: HYPOTHYROIDISM
  4. WELCHOL [Concomitant]
     Indication: PRODUCT USED FOR UNKNOWN INDICATION
  5. CALCIUM [Concomitant]
     Indication: PRODUCT USED FOR UNKNOWN INDICATION
  6. VITAMIN B-12 [Concomitant]
     Indication: VITAMIN B12 DEFICIENCY
     Route: 050
  7. LEFLUNOMIDE [Concomitant]
     Indication: RHEUMATOID ARTHRITIS
  8. SIMVASTATIN [Concomitant]
     Indication: BLOOD CHOLESTEROL INCREASED

REACTIONS (5)
  - RASH [None]
  - HYPERSENSITIVITY [None]
  - INJECTION SITE ERYTHEMA [None]
  - URTICARIA [None]
  - INJECTION SITE PAIN [None]
